FAERS Safety Report 5091248-4 (Version None)
Quarter: 2006Q3

REPORT INFORMATION
  Report Type: 
  Country: None (occurrence: None)
  Receive Date: 20060824
  Receipt Date: 20060814
  Transmission Date: 20061208
  Serious: Yes (Hospitalization, Other)
  Sender: FDA-Public Use
  Company Number: 2006083630

PATIENT
  Age: 16 Year
  Sex: Female

DRUGS (3)
  1. MEDROXYPROGESTERONE [Suspect]
     Indication: CONTRACEPTION
     Dosage: SEE IMAGE
     Route: 030
     Dates: start: 20051101, end: 20051101
  2. MEDROXYPROGESTERONE [Suspect]
     Indication: CONTRACEPTION
     Dosage: SEE IMAGE
     Route: 030
     Dates: start: 20060706, end: 20060706
  3. NIFEREX (POLYSACCHARIDE-I-RON COMPLEX) [Concomitant]

REACTIONS (2)
  - INJECTION SITE INFECTION [None]
  - PHARMACEUTICAL PRODUCT COMPLAINT [None]
